FAERS Safety Report 8150060-X (Version None)
Quarter: 2012Q1

REPORT INFORMATION
  Report Type: 
  Country: None (occurrence: None)
  Receive Date: 20120219
  Receipt Date: 20120209
  Transmission Date: 20120608
  Serious: Yes (Hospitalization)
  Sender: FDA-Public Use
  Company Number: DE-BRISTOL-MYERS SQUIBB COMPANY-16354409

PATIENT
  Age: 56 Year
  Sex: Male
  Weight: 87 kg

DRUGS (16)
  1. CORTICOSTEROID [Concomitant]
     Dosage: 0-30 MIN PRIOR TO ERBITUX ADMINSTRATION 02JAN12: ONGOING
     Route: 042
     Dates: start: 20111227
  2. FLUOROURACIL [Concomitant]
     Indication: COLORECTAL CANCER
     Route: 042
     Dates: start: 20111212
  3. RANITIDINE [Concomitant]
     Indication: PREMEDICATION
     Dosage: 0-30 MIN PRIOR TO ERBITUX ADMINSTRATION 02-JAN12: ONGOING
     Dates: start: 20111227
  4. PARACETAMOL [Concomitant]
     Indication: PREMEDICATION
     Dosage: 0-30 MIN PRIOR TO ERBITUX ADMINSTRATION
     Dates: start: 20111227
  5. MESALAMINE [Concomitant]
  6. DIMENHYDRINATE [Concomitant]
  7. NALOXONE [Concomitant]
     Dosage: 1 DF: 1 UNITS NOT SPECIFIED.
  8. NOVAMIN [Concomitant]
  9. DICLOFENAC SODIUM [Suspect]
     Indication: BONE PAIN
     Route: 048
     Dates: start: 20111212
  10. ERBITUX [Suspect]
     Indication: COLORECTAL CANCER METASTATIC
     Dosage: 27DEC-27DEC11,400MG/M2 02JAN-03JAN12,250MG/M2 17JAN12-ONG,250MG/M2
     Route: 042
     Dates: start: 20111227
  11. IRINOTECAN HCL [Concomitant]
     Indication: COLORECTAL CANCER
     Dosage: 160MG
     Route: 042
     Dates: start: 20111212
  12. METOCLOPRAMIDE [Concomitant]
  13. FOLIC ACID [Concomitant]
     Indication: COLORECTAL CANCER
     Dates: start: 20111212
  14. CITALOPRAM HYDROBROMIDE [Concomitant]
  15. MIRTAZAPINE [Concomitant]
  16. ONDANSETRON [Concomitant]

REACTIONS (1)
  - DIARRHOEA [None]
